FAERS Safety Report 20722263 (Version 1)
Quarter: 2022Q2

REPORT INFORMATION
  Report Type: Spontaneous
  Country: US (occurrence: US)
  Receive Date: 20220418
  Receipt Date: 20220418
  Transmission Date: 20220721
  Serious: No
  Sender: FDA-Public Use
  Company Number: US-PFIZER INC-202101260017

PATIENT
  Age: 78 Year
  Sex: Female

DRUGS (1)
  1. IBRANCE [Suspect]
     Active Substance: PALBOCICLIB
     Indication: Breast cancer female
     Dosage: 100 MG

REACTIONS (8)
  - Product dose omission issue [Unknown]
  - Malaise [Unknown]
  - Myalgia [Unknown]
  - Dyspnoea [Unknown]
  - Gait disturbance [Unknown]
  - Feeling abnormal [Unknown]
  - Dizziness [Unknown]
  - Memory impairment [Unknown]
